FAERS Safety Report 9342768 (Version 1)
Quarter: 2013Q2

REPORT INFORMATION
  Report Type: Spontaneous
  Country: US (occurrence: US)
  Receive Date: 20130611
  Receipt Date: 20130611
  Transmission Date: 20140414
  Serious: Yes (Hospitalization)
  Sender: FDA-Public Use
  Company Number: US-GLAXOSMITHKLINE-A0790618A

PATIENT
  Age: 45 Year
  Sex: Male
  Weight: 71.8 kg

DRUGS (1)
  1. AVANDIA [Suspect]
     Indication: DIABETES MELLITUS
     Dosage: 8MG TWICE PER DAY
     Route: 048

REACTIONS (5)
  - Cardiac failure congestive [Unknown]
  - Ill-defined disorder [Unknown]
  - Cardiac flutter [Unknown]
  - Chest pain [Unknown]
  - Pericardial effusion [Unknown]
